FAERS Safety Report 4838411-2 (Version None)
Quarter: 2005Q4

REPORT INFORMATION
  Report Type: 
  Country: None (occurrence: None)
  Receive Date: 20051128
  Receipt Date: 20050912
  Transmission Date: 20060501
  Serious: Yes (Death, Life-Threatening, Hospitalization)
  Sender: FDA-Public Use
  Company Number: PHRM2005FR02456

PATIENT
  Age: 74 Year
  Sex: Female

DRUGS (10)
  1. GLEEVEC [Suspect]
     Indication: ACUTE LYMPHOCYTIC LEUKAEMIA
     Dosage: 600 MG/DAY
     Route: 048
     Dates: start: 20050722, end: 20050729
  2. EFFERALGAN [Concomitant]
     Indication: PAIN
     Dosage: 1000 MG, TID
     Route: 048
  3. IMOVANE [Concomitant]
     Indication: INSOMNIA
     Route: 048
  4. CELECTOL [Concomitant]
     Route: 048
  5. PRIMPERAN /SCH/ [Concomitant]
     Indication: NAUSEA
  6. SOLU-MEDROL [Concomitant]
     Route: 048
  7. ALLOPURINOL [Concomitant]
     Route: 048
  8. MOPRAL [Concomitant]
     Indication: ABDOMINAL PAIN UPPER
  9. PYOSTACINE [Concomitant]
     Route: 048
  10. CONTRAMAL [Concomitant]
     Indication: PAIN

REACTIONS (7)
  - BLAST CELLS PRESENT [None]
  - BONE MARROW FAILURE [None]
  - NEUTROPHIL COUNT DECREASED [None]
  - PANCYTOPENIA [None]
  - PLATELET COUNT DECREASED [None]
  - RED BLOOD CELL COUNT DECREASED [None]
  - WHITE BLOOD CELL COUNT DECREASED [None]
